FAERS Safety Report 9160960 (Version 1)
Quarter: 2013Q1

REPORT INFORMATION
  Report Type: Spontaneous
  Country: US (occurrence: US)
  Receive Date: 20130313
  Receipt Date: 20130313
  Transmission Date: 20140127
  Serious: No
  Sender: FDA-Public Use
  Company Number: US-PFIZER INC-2013081938

PATIENT
  Age: 48 Year
  Sex: Male
  Weight: 109 kg

DRUGS (8)
  1. LIPITOR [Suspect]
     Dosage: 10 MG, DAILY
  2. NITROSTAT [Suspect]
     Dosage: 0.4 MG, AS NEEDED
  3. SPIRIVA [Suspect]
     Dosage: 18 UG, ONE INHALATION DAILY
  4. PEPCID [Concomitant]
     Dosage: UNK
  5. ADVIL [Concomitant]
     Dosage: UNK
  6. ASPIRIN [Concomitant]
     Dosage: UNK
  7. ZYRTEC [Concomitant]
     Dosage: UNK
  8. ZITHROMAX [Concomitant]
     Dosage: UNK

REACTIONS (5)
  - Back pain [Unknown]
  - Musculoskeletal pain [Unknown]
  - Pain in extremity [Unknown]
  - Dyspnoea [Unknown]
  - Wheezing [Unknown]
